FAERS Safety Report 23491596 (Version 1)
Quarter: 2024Q1

REPORT INFORMATION
  Report Type: Spontaneous
  Country: US (occurrence: US)
  Receive Date: 20240207
  Receipt Date: 20240207
  Transmission Date: 20240410
  Serious: No
  Sender: FDA-Public Use
  Company Number: US-ABBVIE-5616107

PATIENT
  Age: 53 Year
  Sex: Female
  Weight: 61 kg

DRUGS (1)
  1. UBRELVY [Suspect]
     Active Substance: UBROGEPANT
     Indication: Migraine
     Dosage: FORM STRENGTH: 100 MILLIGRAM?FREQUENCY TEXT: AS PER NEEDED
     Route: 048
     Dates: start: 2023, end: 202401

REACTIONS (1)
  - Migraine [Not Recovered/Not Resolved]

NARRATIVE: CASE EVENT DATE: 20240101
